FAERS Safety Report 13928658 (Version 1)
Quarter: 2017Q3

REPORT INFORMATION
  Report Type: Spontaneous
  Country: BR (occurrence: BR)
  Receive Date: 20170901
  Receipt Date: 20170901
  Transmission Date: 20171127
  Serious: Yes (Other)
  Sender: FDA-Public Use
  Company Number: BR-PFIZER INC-2017358284

PATIENT
  Age: 60 Year
  Sex: Female

DRUGS (2)
  1. PREMARIN [Suspect]
     Active Substance: ESTROGENS, CONJUGATED
     Indication: MENOPAUSE
     Dosage: 0.625MG/DAY
     Dates: start: 2015, end: 2016
  2. PREMARIN [Suspect]
     Active Substance: ESTROGENS, CONJUGATED
     Indication: HORMONE REPLACEMENT THERAPY

REACTIONS (8)
  - Anxiety [Recovered/Resolved]
  - Depression [Not Recovered/Not Resolved]
  - Feeling abnormal [Recovered/Resolved]
  - Anaemia [Recovered/Resolved]
  - Insomnia [Recovered/Resolved]
  - Vaginal haemorrhage [Recovered/Resolved]
  - Anal haemorrhage [Not Recovered/Not Resolved]
  - Weight decreased [Recovered/Resolved]

NARRATIVE: CASE EVENT DATE: 2017
